FAERS Safety Report 10978241 (Version 1)
Quarter: 2015Q2

REPORT INFORMATION
  Report Type: Spontaneous
  Country: FR (occurrence: FR)
  Receive Date: 20150402
  Receipt Date: 20150402
  Transmission Date: 20150821
  Serious: Yes (Other)
  Sender: FDA-Public Use
  Company Number: FR-MYLANLABS-2015M1009291

PATIENT

DRUGS (1)
  1. LEVOFLOXACINE MYLAN 500 MG COMPRIM? PELLICUL? S?CABLE [Suspect]
     Active Substance: LEVOFLOXACIN
     Indication: TRACHEITIS
     Dosage: 1 DF, QD
     Dates: start: 20141212, end: 20141222

REACTIONS (4)
  - Platelet count increased [None]
  - Serum ferritin increased [None]
  - Brain scan abnormal [None]
  - Transient ischaemic attack [Recovered/Resolved]

NARRATIVE: CASE EVENT DATE: 201502
